FAERS Safety Report 7187027-4 (Version None)
Quarter: 2010Q4

REPORT INFORMATION
  Report Type: 
  Country: None (occurrence: None)
  Receive Date: 20101222
  Receipt Date: 20100730
  Transmission Date: 20110411
  Serious: No
  Sender: FDA-Public Use
  Company Number: US-AMGEN-TCS417881

PATIENT

DRUGS (7)
  1. ENBREL [Suspect]
     Indication: RHEUMATOID ARTHRITIS
     Dosage: 50 MG, QWK
     Route: 058
     Dates: start: 20100318
  2. SIMVASTATIN [Concomitant]
     Dosage: UNK UNK, UNK
     Dates: start: 20090701
  3. LISINOPRIL [Concomitant]
     Dosage: UNK UNK, UNK
  4. OMEPRAZOLE [Concomitant]
     Dosage: UNK UNK, UNK
     Dates: start: 20090701
  5. VENLAFAXINE HCL [Concomitant]
     Dosage: UNK UNK, UNK
     Dates: start: 20090701
  6. DICLOFENAC [Concomitant]
     Dosage: UNK UNK, UNK
     Dates: start: 20090701
  7. METHOTREXATE [Concomitant]
     Dosage: UNK UNK, UNK
     Dates: start: 20091001

REACTIONS (3)
  - DRUG INEFFECTIVE [None]
  - HEADACHE [None]
  - RHINITIS ALLERGIC [None]
